FAERS Safety Report 6326362-6 (Version None)
Quarter: 2009Q3

REPORT INFORMATION
  Report Type: 
  Country: None (occurrence: None)
  Receive Date: 20090821
  Receipt Date: 20090807
  Transmission Date: 20100115
  Serious: Yes (Hospitalization, Other)
  Sender: FDA-Public Use
  Company Number: 20090379

PATIENT
  Age: 28 Year
  Sex: Male

DRUGS (4)
  1. PHENYLEPHRINE HCL INJECTION, USP (0299-25) 10 MG/ML [Suspect]
     Indication: CEREBRAL DISORDER
     Dosage: 0.5-8.0 UG/KG/MIN FOR 90 HOURS, INTRAVENOUS DRIP
     Route: 041
  2. PROPOFOL [Suspect]
     Indication: SEDATION
     Dosage: 50-75 UG/KG/MIN+95-125 UG/MIN INTRAVENOUS DRIP
     Route: 041
  3. MANNITOL INJECTION [Concomitant]
  4. DOBUTAMINE HCL [Concomitant]

REACTIONS (6)
  - BLOOD CREATINE PHOSPHOKINASE INCREASED [None]
  - BLOOD CREATINE PHOSPHOKINASE MB INCREASED [None]
  - EJECTION FRACTION DECREASED [None]
  - ELECTROCARDIOGRAM QT PROLONGED [None]
  - ELECTROCARDIOGRAM T WAVE INVERSION [None]
  - METABOLIC ACIDOSIS [None]
